FAERS Safety Report 14834051 (Version 1)
Quarter: 2018Q2

REPORT INFORMATION
  Report Type: Spontaneous
  Country: US (occurrence: US)
  Receive Date: 20180501
  Receipt Date: 20180501
  Transmission Date: 20180711
  Serious: No
  Sender: FDA-Public Use
  Company Number: US-ROCHE-2061726

PATIENT
  Sex: Female

DRUGS (1)
  1. AVASTIN [Suspect]
     Active Substance: BEVACIZUMAB
     Indication: OVARIAN CANCER
     Dosage: EVERY THREE WEEKS ;ONGOING: YES
     Route: 042

REACTIONS (4)
  - Pain [Unknown]
  - Fear of death [Unknown]
  - Fatigue [Unknown]
  - Stress [Unknown]
